FAERS Safety Report 5229794-2 (Version None)
Quarter: 2007Q1

REPORT INFORMATION
  Report Type: 
  Country: None (occurrence: None)
  Receive Date: 20070206
  Receipt Date: 20070131
  Transmission Date: 20070707
  Serious: Yes (Death, Other)
  Sender: FDA-Public Use
  Company Number: PHBS2007JP01966

PATIENT
  Age: 45 Year
  Sex: Male

DRUGS (4)
  1. METHOTREXATE [Concomitant]
     Indication: PROPHYLAXIS AGAINST TRANSPLANT REJECTION
     Route: 065
  2. PREDNISOLONE [Concomitant]
     Dosage: 1 MG/KG/D
     Route: 065
  3. PREDNISOLONE [Concomitant]
     Dosage: 2 MG/KG/D
     Route: 065
  4. CYCLOSPORINE [Suspect]
     Indication: PROPHYLAXIS AGAINST TRANSPLANT REJECTION
     Dosage: 1 MG/KG/D
     Route: 065

REACTIONS (3)
  - COLITIS [None]
  - GRAFT VERSUS HOST DISEASE [None]
  - OPPORTUNISTIC INFECTION [None]
